FAERS Safety Report 5783147-7 (Version None)
Quarter: 2008Q2

REPORT INFORMATION
  Report Type: 
  Country: None (occurrence: None)
  Receive Date: 20080619
  Receipt Date: 20080619
  Transmission Date: 20081010
  Serious: Yes (Life-Threatening, Hospitalization, Disabling, Congenital Anomaly, Other)
  Sender: FDA-Public Use
  Company Number: None

PATIENT
  Age: 60 Year
  Sex: Female
  Weight: 58.9676 kg

DRUGS (2)
  1. ADDERALL 20 [Suspect]
     Dosage: ONE CAPSULE ONCE DAILY PO
     Route: 048
  2. ADDERALL 10 [Suspect]
     Dosage: TWO CAPSULES  TWO DAILY PO
     Route: 048

REACTIONS (1)
  - NO ADVERSE EVENT [None]
